FAERS Safety Report 5708448-X (Version None)
Quarter: 2008Q2

REPORT INFORMATION
  Report Type: 
  Country: None (occurrence: None)
  Receive Date: 20080414
  Receipt Date: 20080403
  Transmission Date: 20081010
  Serious: Yes (Other)
  Sender: FDA-Public Use
  Company Number: 2008AP000797

PATIENT
  Sex: Male

DRUGS (5)
  1. LAMOTRIGINE [Suspect]
  2. SERTRALINE HYDROCHLORIDE [Suspect]
  3. LITHIUM CARBONATE [Suspect]
  4. OLANZAPINE [Suspect]
  5. ZIPRASIDONE HCL [Suspect]

REACTIONS (3)
  - AGITATION [None]
  - DISORIENTATION [None]
  - DRUG INTERACTION [None]
